FAERS Safety Report 8154773-5 (Version None)
Quarter: 2012Q1

REPORT INFORMATION
  Report Type: 
  Country: None (occurrence: None)
  Receive Date: 20120221
  Receipt Date: 20120209
  Transmission Date: 20120608
  Serious: Yes (Hospitalization)
  Sender: FDA-Public Use
  Company Number: PHHY2012TR006668

PATIENT
  Sex: Female
  Weight: 75 kg

DRUGS (1)
  1. TASIGNA [Suspect]
     Indication: CHRONIC MYELOID LEUKAEMIA
     Dosage: 800 MG/DAY
     Route: 048
     Dates: start: 20110209, end: 20111201

REACTIONS (5)
  - ANGINA PECTORIS [None]
  - CHOLELITHIASIS [None]
  - INSOMNIA [None]
  - DYSPNOEA [None]
  - CHEST PAIN [None]
